FAERS Safety Report 5749067-9 (Version None)
Quarter: 2008Q2

REPORT INFORMATION
  Report Type: 
  Country: None (occurrence: None)
  Receive Date: 20080527
  Receipt Date: 20080513
  Transmission Date: 20081010
  Serious: Yes (Life-Threatening, Hospitalization)
  Sender: FDA-Public Use
  Company Number: JP-SANOFI-SYNTHELABO-A01200805634

PATIENT
  Age: 20 Year
  Sex: Male

DRUGS (2)
  1. BUSCOPAN [Concomitant]
     Indication: ABDOMINAL PAIN UPPER
     Dosage: 300 MG
     Route: 065
     Dates: start: 19900101, end: 19900101
  2. PENTAZOCINE LACTATE [Suspect]
     Indication: ABDOMINAL PAIN UPPER
     Dosage: UNK
     Route: 041
     Dates: start: 19900101, end: 19900101

REACTIONS (4)
  - BLOOD PRESSURE INCREASED [None]
  - CARDIAC FAILURE CONGESTIVE [None]
  - CONVULSION [None]
  - VENTRICULAR FIBRILLATION [None]
